FAERS Safety Report 24905880 (Version 1)
Quarter: 2025Q1

REPORT INFORMATION
  Report Type: Spontaneous
  Country: CN (occurrence: CN)
  Receive Date: 20250130
  Receipt Date: 20250130
  Transmission Date: 20250408
  Serious: Yes (Disabling)
  Sender: EISAI
  Company Number: CN-Eisai-EC-2025-183188

PATIENT
  Age: 46 Year
  Sex: Female
  Weight: 54 kg

DRUGS (1)
  1. ERIBULIN [Suspect]
     Active Substance: ERIBULIN
     Indication: Breast cancer
     Dosage: ON DAY 1 AND 8 EVERY 3 WEEKS.
     Route: 042
     Dates: start: 20240528, end: 20241018

REACTIONS (1)
  - Myelosuppression [Recovering/Resolving]

NARRATIVE: CASE EVENT DATE: 20241023
